FAERS Safety Report 5273323-4 (Version None)
Quarter: 2007Q1

REPORT INFORMATION
  Report Type: 
  Country: None (occurrence: None)
  Receive Date: 20070319
  Receipt Date: 20070305
  Transmission Date: 20070707
  Serious: Yes (Other)
  Sender: FDA-Public Use
  Company Number: 2007SP004244

PATIENT
  Age: 30 Year
  Sex: Female
  Weight: 62 kg

DRUGS (2)
  1. PEG-INTRON [Suspect]
     Indication: HEPATITIS C
     Dosage: SC
     Route: 058
     Dates: start: 20050620, end: 20060727
  2. RIBAVIRIN [Suspect]
     Indication: HEPATITIS C
     Dosage: 100 MG; PO
     Route: 048
     Dates: start: 20050620, end: 20060727

REACTIONS (2)
  - INJECTION SITE REACTION [None]
  - LIPOATROPHY [None]
